FAERS Safety Report 5797433-8 (Version None)
Quarter: 2008Q3

REPORT INFORMATION
  Report Type: 
  Country: None (occurrence: None)
  Receive Date: 20080701
  Receipt Date: 20080611
  Transmission Date: 20090109
  Serious: No
  Sender: FDA-Public Use
  Company Number: US-BOEHRINGER INGELHEIM GMBH, GERMANY-2008-BP-09237BP

PATIENT
  Age: 64 Year
  Sex: Female

DRUGS (9)
  1. MIRAPEX [Suspect]
     Indication: RESTLESS LEGS SYNDROME
     Route: 048
     Dates: start: 20080610
  2. ESTRADIOL [Concomitant]
  3. NEXIUM [Concomitant]
  4. AVAPRO [Concomitant]
  5. HYDROCHLOROTHIAZIDE [Concomitant]
  6. CYMBALTA [Concomitant]
  7. ASPIRIN [Concomitant]
  8. ASTELIN [Concomitant]
  9. BUSPAR [Concomitant]

REACTIONS (2)
  - CONDITION AGGRAVATED [None]
  - SOMNOLENCE [None]
